FAERS Safety Report 10268374 (Version 1)
Quarter: 2014Q2

REPORT INFORMATION
  Report Type: Spontaneous
  Country: GB (occurrence: GB)
  Receive Date: 20140630
  Receipt Date: 20140630
  Transmission Date: 20141212
  Serious: Yes (Other)
  Sender: FDA-Public Use
  Company Number: GB-TEVA-490120ISR

PATIENT
  Age: 55 Year
  Sex: 0
  Weight: 63.5 kg

DRUGS (7)
  1. METRONIDAZOLE [Suspect]
     Indication: CLOSTRIDIUM DIFFICILE COLITIS
     Dosage: 1200 MILLIGRAM DAILY;
     Route: 048
     Dates: start: 20140422, end: 20140427
  2. CLEXANE [Concomitant]
  3. PARACETAMOL [Concomitant]
  4. THIAMINE [Concomitant]
  5. VANCOMYCIN HYDROCHLORIDE [Concomitant]
  6. ADCAL-D3 [Concomitant]
  7. DIFFLAM [Concomitant]

REACTIONS (4)
  - Visual acuity reduced [Recovering/Resolving]
  - Hypoacusis [Recovering/Resolving]
  - Neuropathy peripheral [Recovering/Resolving]
  - Dandruff [Recovering/Resolving]
